FAERS Safety Report 23211782 (Version 3)
Quarter: 2024Q2

REPORT INFORMATION
  Report Type: Spontaneous
  Country: DE (occurrence: DE)
  Receive Date: 20231121
  Receipt Date: 20240610
  Transmission Date: 20240716
  Serious: Yes (Other)
  Sender: FDA-Public Use
  Company Number: DE-JNJFOC-20230859947

PATIENT
  Age: 8 Decade

DRUGS (57)
  1. BORTEZOMIB [Suspect]
     Active Substance: BORTEZOMIB
     Indication: Plasma cell myeloma
     Dosage: 1.3 MG/M2 AS PART OF BRIDGING THERAPY
     Route: 065
     Dates: start: 20230517
  2. BORTEZOMIB [Suspect]
     Active Substance: BORTEZOMIB
     Dosage: 1.3 MG/M2 AS PART OF BRIDGING THERAPY
     Route: 065
     Dates: start: 20230516
  3. BORTEZOMIB [Suspect]
     Active Substance: BORTEZOMIB
     Dosage: 1.3 MG/M2 AS PART OF BRIDGING THERAPY
     Route: 065
     Dates: start: 20230517
  4. BORTEZOMIB [Suspect]
     Active Substance: BORTEZOMIB
     Dosage: 1.3 MG/M2 BRIDGING THERAPY
     Route: 065
     Dates: start: 20230520
  5. BORTEZOMIB [Suspect]
     Active Substance: BORTEZOMIB
     Dosage: 1.3 MG/M2 BRIDGING THERAPY
     Route: 065
     Dates: start: 20230520
  6. BORTEZOMIB [Suspect]
     Active Substance: BORTEZOMIB
     Dosage: 1.3 MG/M2 BRIDGING THERAPY, SECOND CYCLE
     Route: 065
     Dates: start: 20230612
  7. BORTEZOMIB [Suspect]
     Active Substance: BORTEZOMIB
     Dosage: 1.3 MG/M2 BRIDGING THERAPY, SECOND CYCLE
     Route: 065
     Dates: start: 20230613
  8. BORTEZOMIB [Suspect]
     Active Substance: BORTEZOMIB
     Dosage: 1.3 MG/M2 BRIDGING THERAPY, SECOND CYCLE
     Route: 065
     Dates: start: 20230613
  9. BORTEZOMIB [Suspect]
     Active Substance: BORTEZOMIB
     Dosage: 1.3 MG/M2 BRIDGING THERAPY, THIRD CYCLE
     Route: 065
     Dates: start: 20230704
  10. BORTEZOMIB [Suspect]
     Active Substance: BORTEZOMIB
     Dosage: 1.3 MG/M2 BRIDGING THERAPY, THIRD CYCLE
     Route: 065
     Dates: start: 20230704
  11. DEXAMETHASONE [Suspect]
     Active Substance: DEXAMETHASONE
     Indication: Plasma cell myeloma
     Dosage: 20 MG
     Route: 065
     Dates: start: 20230516
  12. DEXAMETHASONE [Suspect]
     Active Substance: DEXAMETHASONE
     Dosage: 20 MG
     Route: 065
     Dates: start: 20230517
  13. DEXAMETHASONE [Suspect]
     Active Substance: DEXAMETHASONE
     Dosage: 20 MG
     Route: 065
     Dates: start: 20230518
  14. DEXAMETHASONE [Suspect]
     Active Substance: DEXAMETHASONE
     Dosage: 20 MG
     Route: 065
     Dates: start: 20230520
  15. DEXAMETHASONE [Suspect]
     Active Substance: DEXAMETHASONE
     Dosage: 20 MG
     Route: 065
     Dates: start: 20230521
  16. DEXAMETHASONE [Suspect]
     Active Substance: DEXAMETHASONE
     Dosage: 20 MG BRIDGING THERAPY, SECOND CYCLE
     Route: 065
     Dates: start: 20230612
  17. DEXAMETHASONE [Suspect]
     Active Substance: DEXAMETHASONE
     Dosage: 20 MG BRIDGING THERAPY, SECOND CYCLE
     Route: 065
     Dates: start: 20230613
  18. DEXAMETHASONE [Suspect]
     Active Substance: DEXAMETHASONE
     Dosage: 20 MG BRIDGING THERAPY, SECOND CYCLE
     Route: 065
     Dates: start: 20230614
  19. DEXAMETHASONE [Suspect]
     Active Substance: DEXAMETHASONE
     Dosage: 20 MG BRIDGING THERAPY, THIRD CYCLE
     Route: 065
     Dates: start: 20230704
  20. DEXAMETHASONE [Suspect]
     Active Substance: DEXAMETHASONE
     Dosage: 20 MG BRIDGING THERAPY, THIRD CYCLE
     Route: 065
     Dates: start: 20230705
  21. DEXAMETHASONE [Suspect]
     Active Substance: DEXAMETHASONE
     Dosage: 20 MG BRIDGING THERAPY, THIRD CYCLE
     Route: 065
     Dates: start: 20230706
  22. DOXORUBICIN [Suspect]
     Active Substance: DOXORUBICIN
     Dosage: 6 MG/M2 BRIDGING THERAPY, FOURTH CYCLE
     Route: 065
     Dates: start: 20230805, end: 20230808
  23. DOXORUBICIN [Suspect]
     Active Substance: DOXORUBICIN
     Dosage: 6 MG/M2 BRIDGING THERAPY, FOURTH CYCLE
     Route: 065
     Dates: start: 20230805, end: 20230808
  24. DOXORUBICIN [Suspect]
     Active Substance: DOXORUBICIN
     Dosage: 9 MG/M2 (D1, BRIDGING THERAPY, SECOND CYCLE, AS A PART OF SHORTENED PROTOCOL POM-PAD-DARA)
     Route: 065
     Dates: start: 20230612
  25. DOXORUBICIN [Suspect]
     Active Substance: DOXORUBICIN
     Indication: Plasma cell myeloma
     Dosage: 9 MG/M2 BRIDGING THERAPY, C1
     Route: 065
     Dates: start: 20230517, end: 20230520
  26. DOXORUBICIN [Suspect]
     Active Substance: DOXORUBICIN
     Dosage: 9 MG/M2 BRIDGING THERAPY, C1
     Route: 065
     Dates: start: 20230516, end: 20230520
  27. DOXORUBICIN [Suspect]
     Active Substance: DOXORUBICIN
     Dosage: 9 MG/M2 BRIDGING THERAPY, C1
     Route: 065
     Dates: start: 20230517, end: 20230520
  28. DOXORUBICIN [Suspect]
     Active Substance: DOXORUBICIN
     Dosage: 9 MG/M2 BRIDGING THERAPY, SECOND CYCLE
     Route: 065
     Dates: start: 20230613
  29. DOXORUBICIN [Suspect]
     Active Substance: DOXORUBICIN
     Dosage: 9 MG/M2 BRIDGING THERAPY, SECOND CYCLE
     Route: 065
     Dates: start: 20230613
  30. DOXORUBICIN [Suspect]
     Active Substance: DOXORUBICIN
     Dosage: 9 MG/M2 BRIDGING THERAPY, SECOND CYCLE
     Route: 065
     Dates: start: 20230614
  31. DOXORUBICIN [Suspect]
     Active Substance: DOXORUBICIN
     Dosage: 9 MG/M2 BRIDGING THERAPY, SECOND CYCLE
     Route: 065
     Dates: start: 20230614
  32. DOXORUBICIN [Suspect]
     Active Substance: DOXORUBICIN
     Dosage: 9 MG/M2 BRIDGING THERAPY, SECOND CYCLE
     Route: 065
     Dates: start: 20230615
  33. DOXORUBICIN [Suspect]
     Active Substance: DOXORUBICIN
     Dosage: 9 MG/M2 BRIDGING THERAPY, SECOND CYCLE
     Route: 065
     Dates: start: 20230615
  34. DOXORUBICIN [Suspect]
     Active Substance: DOXORUBICIN
     Dosage: 9 MG/M2 BRIDGING THERAPY, THIRD CYCLE
     Route: 065
     Dates: start: 20230704
  35. DOXORUBICIN [Suspect]
     Active Substance: DOXORUBICIN
     Dosage: 9 MG/M2 BRIDGING THERAPY, THIRD CYCLE
     Route: 065
     Dates: start: 20230705
  36. DOXORUBICIN [Suspect]
     Active Substance: DOXORUBICIN
     Dosage: 9 MG/M2 BRIDGING THERAPY, THIRD CYCLE
     Route: 065
     Dates: start: 20230705
  37. DOXORUBICIN [Suspect]
     Active Substance: DOXORUBICIN
     Dosage: 9 MG/M2 BRIDGING THERAPY, THIRD CYCLE
     Route: 065
     Dates: start: 20230706
  38. DOXORUBICIN [Suspect]
     Active Substance: DOXORUBICIN
     Dosage: 9 MG/M2 BRIDGING THERAPY, THIRD CYCLE
     Route: 065
     Dates: start: 20230706
  39. DOXORUBICIN [Suspect]
     Active Substance: DOXORUBICIN
     Dosage: 9 MG/M2 BRIDGING THERAPY, THIRD CYCLE
     Route: 065
     Dates: start: 20230707
  40. DOXORUBICIN [Suspect]
     Active Substance: DOXORUBICIN
     Dosage: 9 MG/M2 BRIDGING THERAPY, THIRD CYCLE
     Route: 065
     Dates: start: 20230707
  41. DARATUMUMAB [Suspect]
     Active Substance: DARATUMUMAB
     Dosage: 16 MG/M2 (D0, BRIDGING THERAPY)
     Route: 065
     Dates: start: 20230516
  42. DARATUMUMAB [Suspect]
     Active Substance: DARATUMUMAB
     Indication: Plasma cell myeloma
     Dosage: 16 MG/M2, D0, BRIDGING THERAPY, THIRD CYCLE, AS A PART OF SHORTENED PROTOCOL POM-PAD-DARA
     Route: 065
     Dates: start: 20230704
  43. DARATUMUMAB [Suspect]
     Active Substance: DARATUMUMAB
     Dosage: 16 MG/M2, D0, BRIDGING THERAPY, THIRD CYCLE, AS A PART OF SHORTENED PROTOCOL POM-PAD-DARA
     Route: 065
     Dates: start: 20230612
  44. DARATUMUMAB [Suspect]
     Active Substance: DARATUMUMAB
     Dosage: 16 MG/M2, D3, BRIDGING THERAPY, SECOND CYCLE, AS A PART OF SHORTENED PROTOCOL POM-PAD-DARA
     Route: 065
     Dates: start: 20230615
  45. DARATUMUMAB [Suspect]
     Active Substance: DARATUMUMAB
     Dosage: 16 MG/M2, D5, BRIDGING THERAPY
     Route: 065
     Dates: start: 20230521
  46. DARZALEX [Suspect]
     Active Substance: DARATUMUMAB
     Dosage: 16 MG/M2
     Route: 065
     Dates: start: 20230521
  47. DARZALEX [Suspect]
     Active Substance: DARATUMUMAB
     Dosage: 16 MG/M2
     Route: 065
     Dates: start: 20230612
  48. DARZALEX [Suspect]
     Active Substance: DARATUMUMAB
     Indication: Plasma cell myeloma
     Dosage: 16 MG/M2 AS PART OF BRIDGING THERAPY
     Route: 065
     Dates: start: 20230516
  49. DARZALEX [Suspect]
     Active Substance: DARATUMUMAB
     Dosage: 16 MG/M2 BRIDGING THERAPY, SECOND CYCLE
     Route: 065
     Dates: start: 20230615
  50. DARZALEX [Suspect]
     Active Substance: DARATUMUMAB
     Dosage: 16 MG/M2 BRIDGING THERAPY, THIRD CYCLE
     Route: 065
     Dates: start: 20230704
  51. DARZALEX [Suspect]
     Active Substance: DARATUMUMAB
     Dosage: 16 MG/M2 BRIDGING THERAPY, THIRD CYCLE
     Route: 065
     Dates: start: 20230707
  52. POMALIDOMIDE [Suspect]
     Active Substance: POMALIDOMIDE
     Dosage: 2 MG BRIDGING THERAPY, THIRD CYCLE
     Route: 065
     Dates: start: 20230705, end: 20230707
  53. POMALIDOMIDE [Suspect]
     Active Substance: POMALIDOMIDE
     Dosage: 2 MG, D1-3, BRIDGING THERAPY, THIRD CYCLE, AS A PART OF SHORTENED PROTOCOL POM-PAD-DARA
     Route: 065
     Dates: start: 20230704, end: 20230707
  54. POMALIDOMIDE [Suspect]
     Active Substance: POMALIDOMIDE
     Dosage: 4 MG
     Route: 065
     Dates: start: 20230517, end: 20230530
  55. POMALIDOMIDE [Suspect]
     Active Substance: POMALIDOMIDE
     Indication: Plasma cell myeloma
     Dosage: 4 MG BRIDGING THERAPY, SECOND CYCLE
     Route: 065
     Dates: start: 20230513, end: 20230615
  56. POMALIDOMIDE [Suspect]
     Active Substance: POMALIDOMIDE
     Dosage: 4 MG, D1-3, BRIDGING THERAPY, SECOND CYCLE, AS A PART OF SHORTENED PROTOCOL POM-PAD-DARA
     Route: 065
     Dates: start: 20230512, end: 20230615
  57. POMALIDOMIDE [Suspect]
     Active Substance: POMALIDOMIDE
     Dosage: 4 MG, D1-3, BRIDGING THERAPY, SECOND CYCLE, AS A PART OF SHORTENED PROTOCOL POM-PAD-DARA
     Route: 065
     Dates: start: 20230516, end: 20230530

REACTIONS (2)
  - Plasma cell myeloma [Unknown]
  - Intentional product use issue [Unknown]

NARRATIVE: CASE EVENT DATE: 20230101
